FAERS Safety Report 7673438 (Version 6)
Quarter: 2013Q3

REPORT INFORMATION
  Report Type: Spontaneous
  Country: FR (occurrence: None)
  Receive Date: 20101026
  Receipt Date: 20130709
  Transmission Date: 20140515
  Serious: Yes (Hospitalization)
  Sender: FDA-Public Use
  Company Number: 2010-2399

PATIENT
  Age: 11 Year
  Sex: Male
  Weight: 27.5 kg

DRUGS (9)
  1. INCRELEX [Suspect]
     Indication: INSULIN-LIKE GROWTH FACTOR DECREASED
     Dosage: 0.16 MG/KG (0.08 MG/KG,2 IN 1 D),SUBCUTANEOUS
     Route: 058
     Dates: start: 20081223
  2. ANTIDEPRESSANTS (ANTIDEPRESSANTS) [Concomitant]
  3. ANTIBIOTICS (ANTIBIOTICS) [Concomitant]
  4. CREON [Concomitant]
  5. UVESTEROL (UVESTEROL) [Concomitant]
  6. URSODIOL [Concomitant]
  7. VENTOLIN [Concomitant]
  8. BECONASE AQ [Concomitant]
  9. MOPRAL (OMEPRAZOLE) [Concomitant]

REACTIONS (3)
  - Insulin-like growth factor decreased [None]
  - Hydrocele [None]
  - Drug level below therapeutic [None]
